FAERS Safety Report 24192537 (Version 1)
Quarter: 2024Q3

REPORT INFORMATION
  Report Type: Spontaneous
  Country: US (occurrence: US)
  Receive Date: 20240809
  Receipt Date: 20240809
  Transmission Date: 20241017
  Serious: No
  Sender: PADAGIS
  Company Number: US-PADAGIS-2024PAD01264

PATIENT

DRUGS (2)
  1. TRIAMCINOLONE ACETONIDE [Suspect]
     Active Substance: TRIAMCINOLONE ACETONIDE
     Indication: Lymphoma
     Dosage: 450 G/ MONTH-EVERY EIGHT HOURS ON MANY BODY PARTS
     Route: 065
     Dates: start: 20240708
  2. TRIAMCINOLONE ACETONIDE [Suspect]
     Active Substance: TRIAMCINOLONE ACETONIDE
     Dosage: UNK (SAPTALIS)
     Route: 065

REACTIONS (3)
  - Skin injury [Unknown]
  - Product use in unapproved indication [Unknown]
  - Product physical consistency issue [Unknown]
